FAERS Safety Report 5834911-7 (Version None)
Quarter: 2008Q3

REPORT INFORMATION
  Report Type: 
  Country: None (occurrence: None)
  Receive Date: 20080806
  Receipt Date: 20080725
  Transmission Date: 20090109
  Serious: Yes (Death, Hospitalization, Other)
  Sender: FDA-Public Use
  Company Number: US-JNJFOC-20080702642

PATIENT
  Sex: Male
  Weight: 94.8 kg

DRUGS (18)
  1. REMICADE [Suspect]
     Route: 042
  2. REMICADE [Suspect]
     Indication: RHEUMATOID ARTHRITIS
     Route: 042
  3. NEXIUM [Concomitant]
  4. ARAVA [Concomitant]
  5. CALCIUM [Concomitant]
  6. M.V.I. [Concomitant]
  7. AMBIEN [Concomitant]
  8. ARICEPT [Concomitant]
  9. GABAPENTIN [Concomitant]
  10. CELEXA [Concomitant]
  11. VERAPAMIL [Concomitant]
  12. ADVAIR DISKUS 100/50 [Concomitant]
  13. LISINOPRIL [Concomitant]
  14. COMBIVENT [Concomitant]
  15. FLONASE [Concomitant]
  16. POTASSIUM CHLORIDE [Concomitant]
  17. ASCORBIC ACID [Concomitant]
  18. TRAZODONE HCL [Concomitant]

REACTIONS (9)
  - ARTERIOSCLEROSIS CORONARY ARTERY [None]
  - CARDIOMEGALY [None]
  - COLON CANCER [None]
  - DIVERTICULUM [None]
  - HEPATOMEGALY [None]
  - PERITONITIS [None]
  - RENAL CYST [None]
  - SEPTIC SHOCK [None]
  - TESTICULAR NEOPLASM [None]
